FAERS Safety Report 9238979 (Version 1)
Quarter: 2013Q2

REPORT INFORMATION
  Report Type: Spontaneous
  Country: DE (occurrence: DE)
  Receive Date: 20130418
  Receipt Date: 20130418
  Transmission Date: 20140414
  Serious: Yes (Life-Threatening, Hospitalization)
  Sender: FDA-Public Use
  Company Number: DE-B.I. PHARMACEUTICALS,INC./RIDGEFIELD-2013-DE-00508DE

PATIENT
  Age: 78 Year
  Sex: Female
  Weight: 80 kg

DRUGS (7)
  1. PRADAXA [Suspect]
     Indication: ATRIAL FIBRILLATION
     Dosage: 110 NR
     Dates: start: 20120831, end: 20130219
  2. BLOPRESS [Concomitant]
     Dosage: 8 MG
  3. METOPROLOL SUCC [Concomitant]
     Dosage: 95 MG
  4. AMLODIPINE [Concomitant]
     Dosage: 5 MG
  5. TORASEMID [Concomitant]
     Dosage: 5 MG
  6. LEVODOPA [Concomitant]
     Dosage: STRENGTH: DAILY DOSE 100/25, 1-0-1
  7. ALLOPURINOL [Concomitant]
     Dosage: 300 MG

REACTIONS (6)
  - Blood creatinine increased [Recovered/Resolved]
  - Fatigue [Recovered/Resolved]
  - Asthenia [Recovered/Resolved]
  - Adenoma benign [Recovered/Resolved]
  - Lividity [Recovered/Resolved]
  - Off label use [Unknown]
